FAERS Safety Report 6270826-0 (Version None)
Quarter: 2009Q3

REPORT INFORMATION
  Report Type: 
  Country: None (occurrence: None)
  Receive Date: 20090716
  Receipt Date: 20090706
  Transmission Date: 20100115
  Serious: Yes (Other)
  Sender: FDA-Public Use
  Company Number: PHHY2009CA27560

PATIENT
  Sex: Male

DRUGS (4)
  1. EXJADE [Suspect]
     Indication: THALASSAEMIA BETA
     Dosage: UNK
     Route: 048
     Dates: start: 20081001
  2. EXJADE [Suspect]
     Indication: IRON OVERLOAD
  3. ASCORBIC ACID [Concomitant]
     Dosage: UNK
  4. VITAMIN D [Concomitant]

REACTIONS (2)
  - CONSTIPATION [None]
  - OSTEOPOROSIS [None]
